FAERS Safety Report 17266617 (Version 1)
Quarter: 2020Q1

REPORT INFORMATION
  Report Type: Spontaneous
  Country: US (occurrence: US)
  Receive Date: 20200113
  Receipt Date: 20200113
  Transmission Date: 20200409
  Serious: No
  Sender: FDA-Public Use
  Company Number: None

PATIENT
  Age: 32 Year
  Sex: Female
  Weight: 66.6 kg

DRUGS (7)
  1. TOPAMAX [Concomitant]
     Active Substance: TOPIRAMATE
  2. EMGALITY [Suspect]
     Active Substance: GALCANEZUMAB-GNLM
     Indication: MIGRAINE
     Dates: start: 20191226, end: 20200113
  3. MULTI-VITAMIN [Concomitant]
     Active Substance: .ALPHA.-TOCOPHEROL ACETATE, DL-\ASCORBIC ACID\CYANOCOBALAMIN\FLUORIDE ION\FOLIC ACID\NIACIN\PYRIDOXINE\RIBOFLAVIN\THIAMINE\VITAMIN A\VITAMIN D
  4. TYLENOL [Concomitant]
     Active Substance: ACETAMINOPHEN
  5. BUPROPION. [Concomitant]
     Active Substance: BUPROPION
  6. EMGALITY [Suspect]
     Active Substance: GALCANEZUMAB-GNLM
     Indication: HEADACHE
     Dates: start: 20191226, end: 20200113
  7. PANTOPRAZOLE [Concomitant]
     Active Substance: PANTOPRAZOLE

REACTIONS (4)
  - Menorrhagia [None]
  - Dysmenorrhoea [None]
  - Back pain [None]
  - Polymenorrhoea [None]

NARRATIVE: CASE EVENT DATE: 20200103
